FAERS Safety Report 7404321-X (Version None)
Quarter: 2011Q2

REPORT INFORMATION
  Report Type: 
  Country: None (occurrence: None)
  Receive Date: 20110408
  Receipt Date: 20110328
  Transmission Date: 20111010
  Serious: Yes (Other)
  Sender: FDA-Public Use
  Company Number: CA-ELI_LILLY_AND_COMPANY-CA201104000466

PATIENT

DRUGS (8)
  1. MANNITOL [Concomitant]
  2. PEMETREXED [Suspect]
     Dosage: 500 MG/M2, DAY 1 EVERY 3 WEEKS
     Route: 042
  3. CISPLATIN [Concomitant]
     Dosage: 75 MG/M2, DAY 1 EVERY 3 WEEKS
     Route: 042
  4. CISPLATIN [Concomitant]
     Indication: NON-SMALL CELL LUNG CANCER STAGE IIIB
     Dosage: 25 MG/M2, DAYS 1 TO 5 AND 22 TO 26
     Route: 042
  5. DEXAMETHASONE [Concomitant]
     Indication: PREMEDICATION
     Dosage: 4 MG, EVERY 12 H
  6. FOLIC ACID [Concomitant]
     Indication: VITAMIN SUPPLEMENTATION
     Dosage: 0.4 MG, QD
     Route: 048
  7. VITAMIN B-12 [Concomitant]
     Indication: VITAMIN SUPPLEMENTATION
     Dosage: 1 MG, EVERY 9 WEEKS
     Route: 030
  8. PEMETREXED [Suspect]
     Indication: NON-SMALL CELL LUNG CANCER STAGE IIIB
     Dosage: 300, 400 OR 500MG/M2, DAYS 1 AND DAY 22
     Route: 042

REACTIONS (4)
  - NEUTROPENIA [None]
  - THROMBOCYTOPENIA [None]
  - HYPOPHOSPHATAEMIA [None]
  - OESOPHAGITIS [None]
